FAERS Safety Report 12760906 (Version 2)
Quarter: 2017Q1

REPORT INFORMATION
  Report Type: Spontaneous
  Country: US (occurrence: US)
  Receive Date: 20160919
  Receipt Date: 20170113
  Transmission Date: 20170428
  Serious: No
  Sender: FDA-Public Use
  Company Number: US-TEVA-692408USA

PATIENT
  Sex: Female

DRUGS (1)
  1. QVAR [Suspect]
     Active Substance: BECLOMETHASONE DIPROPIONATE
     Dosage: 3 PUFFS TWO TIMES A DAY
     Route: 065

REACTIONS (6)
  - Inappropriate schedule of drug administration [Unknown]
  - Dysgeusia [Recovered/Resolved]
  - Dysphonia [Unknown]
  - Dysphonia [Recovered/Resolved]
  - Dysgeusia [Unknown]
  - Cough [Unknown]
